FAERS Safety Report 23103743 (Version 9)
Quarter: 2025Q4

REPORT INFORMATION
  Report Type: Report from Study
  Country: US (occurrence: US)
  Receive Date: 20231025
  Receipt Date: 20251224
  Transmission Date: 20260118
  Serious: No
  Sender: PFIZER
  Company Number: US-PFIZER INC-PV202300175493

PATIENT
  Age: 59 Year
  Sex: Male

DRUGS (4)
  1. BOSULIF [Suspect]
     Active Substance: BOSUTINIB MONOHYDRATE
     Dosage: 400 MG
     Route: 048
  2. BOSULIF [Suspect]
     Active Substance: BOSUTINIB MONOHYDRATE
     Dosage: 400 MG, DAILY (TAKE 4 TABLETS BY MOUTH DAILY)
     Route: 048
  3. BOSULIF [Suspect]
     Active Substance: BOSUTINIB MONOHYDRATE
     Dosage: 400 MG, DAILY  (TAKE 4 TABS PO QD)
     Route: 048
  4. TESSALON [Concomitant]
     Active Substance: BENZONATATE
     Dosage: 300 MG, DAILY (AS NEEDED FOR UP TO 10 DAYS)
     Route: 048

REACTIONS (5)
  - Feeling abnormal [Unknown]
  - Illness [Recovering/Resolving]
  - Immune system disorder [Unknown]
  - COVID-19 [Unknown]
  - Influenza [Unknown]
